FAERS Safety Report 19199933 (Version 2)
Quarter: 2021Q2

REPORT INFORMATION
  Report Type: Spontaneous
  Country: KZ (occurrence: KZ)
  Receive Date: 20210430
  Receipt Date: 20210601
  Transmission Date: 20210717
  Serious: Yes (Hospitalization, Other)
  Sender: FDA-Public Use
  Company Number: KZ-TAKEDA-2021TUS026324

PATIENT
  Age: 40 Year
  Sex: Male

DRUGS (3)
  1. ENTYVIO [Suspect]
     Active Substance: VEDOLIZUMAB
     Indication: INTERFERON THERAPY
  2. ENTYVIO [Suspect]
     Active Substance: VEDOLIZUMAB
     Indication: CROHN^S DISEASE
     Dosage: 300 MILLIGRAM
     Route: 042
     Dates: start: 20200924
  3. ENTYVIO [Suspect]
     Active Substance: VEDOLIZUMAB
     Indication: TUMOUR NECROSIS

REACTIONS (3)
  - Hospitalisation [Unknown]
  - Appendicectomy [Unknown]
  - Drug ineffective [Unknown]
